FAERS Safety Report 21977449 (Version 1)
Quarter: 2023Q1

REPORT INFORMATION
  Report Type: Spontaneous
  Country: DE (occurrence: None)
  Receive Date: 20230210
  Receipt Date: 20230210
  Transmission Date: 20230417
  Serious: Yes (Death, Hospitalization)
  Sender: FDA-Public Use
  Company Number: DE-ROCHE-3241649

PATIENT
  Age: 13 Year
  Sex: Male
  Weight: 40 kg

DRUGS (5)
  1. EVRYSDI [Suspect]
     Active Substance: RISDIPLAM
     Indication: Spinal muscular atrophy
     Route: 065
     Dates: start: 20210618, end: 20221211
  2. MUCOCLEAR (GERMANY) [Concomitant]
     Indication: Chronic respiratory failure
     Route: 065
     Dates: start: 201406
  3. ALBUTEROL [Concomitant]
     Active Substance: ALBUTEROL
     Indication: Chronic respiratory failure
     Route: 065
     Dates: start: 201503
  4. BUDENOBRONCH [Concomitant]
     Indication: Chronic respiratory failure
     Route: 065
     Dates: start: 201609
  5. POLYETHYLENE GLYCOLS [Concomitant]
     Active Substance: POLYETHYLENE GLYCOLS
     Indication: Constipation
     Route: 065
     Dates: start: 2010

REACTIONS (4)
  - Respiratory syncytial virus infection [Fatal]
  - Influenza [Fatal]
  - Respiratory failure [Fatal]
  - Cardiovascular disorder [Fatal]

NARRATIVE: CASE EVENT DATE: 20221212
